FAERS Safety Report 20717484 (Version 1)
Quarter: 2022Q2

REPORT INFORMATION
  Report Type: Spontaneous
  Country: IT (occurrence: IT)
  Receive Date: 20220417
  Receipt Date: 20220417
  Transmission Date: 20220720
  Serious: Yes (Other)
  Sender: FDA-Public Use
  Company Number: None

PATIENT
  Age: 73 Year
  Sex: Female

DRUGS (2)
  1. FLUOROURACIL [Suspect]
     Active Substance: FLUOROURACIL
     Indication: Adenocarcinoma of colon
     Dosage: UNIT DOSE: 3900 MG, FREQUENCY TIME 1 CYCLICAL, DURATION 52 DAYS, STRENGTH: 5 G / 100 ML
     Route: 042
     Dates: start: 20220204, end: 20220328
  2. IRINOTECAN [Suspect]
     Active Substance: IRINOTECAN
     Indication: Adenocarcinoma of colon
     Dosage: UNIT DOSE: 250 MG, FREQUENCY TIME 1 CYCLICAL, DURATION 52 DAYS, STRENGTH: 20 MG / ML
     Route: 042
     Dates: start: 20220204, end: 20220328

REACTIONS (1)
  - Neutropenia [Recovering/Resolving]

NARRATIVE: CASE EVENT DATE: 20220224
